FAERS Safety Report 11736736 (Version 4)
Quarter: 2015Q4

REPORT INFORMATION
  Report Type: Spontaneous
  Country: US (occurrence: US)
  Receive Date: 20151113
  Receipt Date: 20151214
  Transmission Date: 20160304
  Serious: No
  Sender: FDA-Public Use
  Company Number: US-JNJFOC-20151010075

PATIENT
  Sex: Female
  Weight: 76.2 kg

DRUGS (1)
  1. IMODIUM MULTI-SYMPTOM RELIEF [Suspect]
     Active Substance: DIMETHICONE\LOPERAMIDE HYDROCHLORIDE
     Indication: DIARRHOEA
     Dosage: 1-2 CAPLETS AS NEEDED
     Route: 048

REACTIONS (3)
  - Product size issue [Unknown]
  - Product packaging issue [Unknown]
  - Dysphagia [Not Recovered/Not Resolved]
